FAERS Safety Report 25525464 (Version 1)
Quarter: 2025Q3

REPORT INFORMATION
  Report Type: Report from Study
  Country: EU (occurrence: EU)
  Receive Date: 20250707
  Receipt Date: 20250707
  Transmission Date: 20251021
  Serious: Yes (Hospitalization)
  Sender: ABBVIE
  Company Number: EU-ABBVIE-6357459

PATIENT
  Age: 38 Year
  Sex: Female

DRUGS (1)
  1. HUMIRA [Suspect]
     Active Substance: ADALIMUMAB
     Indication: Psoriasis
     Route: 058
     Dates: start: 20151212

REACTIONS (3)
  - Renal colic [Unknown]
  - Hydronephrosis [Unknown]
  - Ureterolithiasis [Unknown]

NARRATIVE: CASE EVENT DATE: 20250209
